FAERS Safety Report 24975926 (Version 1)
Quarter: 2025Q1

REPORT INFORMATION
  Report Type: Spontaneous
  Country: KR (occurrence: KR)
  Receive Date: 20250217
  Receipt Date: 20250217
  Transmission Date: 20250409
  Serious: No
  Sender: ALEXION PHARMACEUTICALS
  Company Number: KR-AstraZeneca-2023-72451

PATIENT
  Age: 52 Year

DRUGS (11)
  1. NEXIUM [Suspect]
     Active Substance: ESOMEPRAZOLE MAGNESIUM
     Dosage: 1 DOSAGE FORM, QD
  2. CHLORPHENIRAMINE MALEATE [Suspect]
     Active Substance: CHLORPHENIRAMINE MALEATE
     Dosage: 1 DOSAGE FORM, TID
  3. CLOTIAZEPAM [Suspect]
     Active Substance: CLOTIAZEPAM
     Dosage: .25 DOSAGE FORM, TID
  4. CEFDITOREN PIVOXIL [Suspect]
     Active Substance: CEFDITOREN PIVOXIL
     Dosage: 1 DOSAGE FORM, TID
  5. KETOTIFEN FUMARATE [Suspect]
     Active Substance: KETOTIFEN FUMARATE
     Dosage: .5 DOSAGE FORM, Q12H
  6. MOSAPRIDE CITRATE DIHYDRATE [Suspect]
     Active Substance: MOSAPRIDE CITRATE DIHYDRATE
     Dosage: 1 DOSAGE FORM, Q12H
  7. REBAMIPIDE [Suspect]
     Active Substance: REBAMIPIDE
     Dosage: 1 DOSAGE FORM, TID
  8. ACETAMINOPHEN [Suspect]
     Active Substance: ACETAMINOPHEN
     Dosage: 1 DOSAGE FORM, TID
  9. AMBROXOL ACEFYLLINATE [Suspect]
     Active Substance: AMBROXOL ACEFYLLINATE
     Dosage: 1 DOSAGE FORM, Q12H
  10. METHYLPREDNISOLONE [Suspect]
     Active Substance: METHYLPREDNISOLONE
     Dosage: .5 DOSAGE FORM, TID
  11. UNSPECIFIED INGREDIENT [Suspect]
     Active Substance: UNSPECIFIED INGREDIENT
     Dosage: 1 DOSAGE FORM, QD

REACTIONS (1)
  - Tinnitus [Recovered/Resolved]
